FAERS Safety Report 5170222-3 (Version None)
Quarter: 2006Q4

REPORT INFORMATION
  Report Type: 
  Country: None (occurrence: None)
  Receive Date: 20061204
  Receipt Date: 20061108
  Transmission Date: 20070319
  Serious: Yes (Other)
  Sender: FDA-Public Use
  Company Number: 2006BH012684

PATIENT
  Sex: Male

DRUGS (2)
  1. EXTRANEAL [Suspect]
     Indication: PERITONEAL DIALYSIS
     Dosage: EVERY DAY; IP
     Route: 033
     Dates: start: 20040102
  2. DIANEAL [Concomitant]

REACTIONS (4)
  - DRUG INTERACTION [None]
  - HYPOGLYCAEMIA [None]
  - LABORATORY TEST INTERFERENCE [None]
  - PHARMACEUTICAL PRODUCT COMPLAINT [None]
